FAERS Safety Report 9169247 (Version 1)
Quarter: 2013Q1

REPORT INFORMATION
  Report Type: Spontaneous
  Country: FR (occurrence: FR)
  Receive Date: 20130318
  Receipt Date: 20130318
  Transmission Date: 20140127
  Serious: Yes (Hospitalization)
  Sender: FDA-Public Use
  Company Number: FR-ROCHE-711928

PATIENT
  Age: 94 Year
  Sex: Female

DRUGS (2)
  1. ROCEPHINE [Suspect]
     Indication: LUNG DISORDER
     Route: 058
     Dates: start: 20100418, end: 20100429
  2. INSULIN [Concomitant]
     Indication: TYPE 2 DIABETES MELLITUS
     Route: 065

REACTIONS (1)
  - Acute generalised exanthematous pustulosis [Recovered/Resolved]
